FAERS Safety Report 9257424 (Version 1)
Quarter: 2013Q1

REPORT INFORMATION
  Report Type: Spontaneous
  Country: US (occurrence: None)
  Receive Date: 20121212
  Receipt Date: 20121212
  Transmission Date: 20140127
  Serious: No
  Sender: FDA-Public Use
  Company Number: 1209USA005650

PATIENT
  Age: 57 Year
  Sex: Male
  Weight: 111.1 kg

DRUGS (8)
  1. PEG-INTRON [Suspect]
     Route: 058
  2. REBETOL [Suspect]
  3. VICTRELIS [Suspect]
     Route: 048
  4. WELLBUTRIN TABLETS (BUPROPION HYDROCHLORIDE) TABLET, 100 MG [Concomitant]
  5. LISINOPRIL (LISINOPRIL) TABLET, 10 MG [Concomitant]
  6. OMEPRAZOLE (OMEPRAZOLE) CAPSULE, 20 MG [Concomitant]
  7. RANITIDINE (RANITIDINE) TABLET, 300 MG [Concomitant]
  8. HYDROCORTISONE (HYDROCORTISONE) [Concomitant]

REACTIONS (8)
  - Dysgeusia [None]
  - Arthralgia [None]
  - Blister [None]
  - Libido decreased [None]
  - Dyspnoea [None]
  - Fatigue [None]
  - Dizziness [None]
  - Rash [None]
